FAERS Safety Report 6786735-4 (Version None)
Quarter: 2010Q2

REPORT INFORMATION
  Report Type: 
  Country: None (occurrence: None)
  Receive Date: 20100623
  Receipt Date: 20100607
  Transmission Date: 20101027
  Serious: No
  Sender: FDA-Public Use
  Company Number: US-TEVA-237854USA

PATIENT
  Sex: Female

DRUGS (1)
  1. SALBUTAMOL SULFATE INHALATION, 0.09 MG [Suspect]
     Indication: INFECTION
     Dosage: AS NEEDED
     Route: 055
     Dates: start: 20100301

REACTIONS (2)
  - CHOKING [None]
  - FOREIGN BODY [None]
